FAERS Safety Report 7906469-X (Version None)
Quarter: 2011Q4

REPORT INFORMATION
  Report Type: 
  Country: None (occurrence: None)
  Receive Date: 20111110
  Receipt Date: 20111103
  Transmission Date: 20120403
  Serious: Yes (Other)
  Sender: FDA-Public Use
  Company Number: BR-JNJFOC-20111101681

PATIENT
  Age: 82 Year
  Sex: Female

DRUGS (10)
  1. ACETAMINOPHEN W/ CODEINE [Suspect]
     Route: 048
     Dates: start: 20111030, end: 20111101
  2. AMIODARONE HYDROCHLORIDE [Concomitant]
     Indication: CARDIAC FIBRILLATION
     Route: 065
  3. DAFLON(DIOSMIN W/HESPERIDIN) [Concomitant]
     Indication: VARICOSE VEIN
     Route: 065
  4. WARFARIN SODIUM [Concomitant]
     Indication: CARDIAC FIBRILLATION
     Route: 065
  5. ACETAMINOPHEN W/ CODEINE [Suspect]
     Indication: BACK PAIN
     Dosage: STARTED THE DRUG ON 30-OCT-2011 TO 01-NOV-2011
     Route: 048
  6. SYMBICORT [Concomitant]
     Indication: LUNG DISORDER
     Route: 065
  7. NASACORT [Concomitant]
     Indication: PRODUCT USED FOR UNKNOWN INDICATION
     Route: 065
  8. CITALOPRAM HYDROBROMIDE [Concomitant]
     Indication: CARDIAC FIBRILLATION
     Route: 065
  9. LORATADINE [Concomitant]
     Indication: DERMATITIS ALLERGIC
     Route: 065
  10. RUPATADINE FUMARATE [Concomitant]
     Indication: DERMATITIS ALLERGIC
     Route: 065

REACTIONS (1)
  - HALLUCINATION [None]
